FAERS Safety Report 12062840 (Version 1)
Quarter: 2016Q1

REPORT INFORMATION
  Report Type: Spontaneous
  Country: US (occurrence: US)
  Receive Date: 20160210
  Receipt Date: 20160210
  Transmission Date: 20160526
  Serious: No
  Sender: FDA-Public Use
  Company Number: US-ALLERGAN-1505536US

PATIENT
  Age: 63 Year
  Sex: Female

DRUGS (5)
  1. BOTOX [Suspect]
     Active Substance: ONABOTULINUMTOXINA
     Indication: SKIN WRINKLING
     Dosage: 40 UNITS, SINGLE
     Route: 030
     Dates: start: 20140721, end: 20140721
  2. JUVEDERM ULTRA XC [Suspect]
     Active Substance: HYALURONIC ACID\LIDOCAINE HYDROCHLORIDE
     Indication: DERMAL FILLER INJECTION
     Dosage: UNK, SINGLE
     Dates: start: 20140721, end: 20140721
  3. RESTYLANE [Suspect]
     Active Substance: HYALURONIC ACID
     Indication: DERMAL FILLER INJECTION
     Dosage: UNK UNK, SINGLE
     Dates: start: 20140721, end: 20140721
  4. BOTOX [Suspect]
     Active Substance: ONABOTULINUMTOXINA
     Indication: SKIN WRINKLING
  5. JUVEDERM VOLUMA XC [Suspect]
     Active Substance: HYALURONIC ACID\LIDOCAINE HYDROCHLORIDE
     Indication: DERMAL FILLER INJECTION
     Dosage: UNK UNK, SINGLE
     Dates: start: 20140721, end: 20140721

REACTIONS (21)
  - Skin mass [Recovering/Resolving]
  - Productive cough [Not Recovered/Not Resolved]
  - Pulmonary congestion [Unknown]
  - Tongue coated [Recovering/Resolving]
  - Panic reaction [Unknown]
  - Sinus congestion [Recovering/Resolving]
  - Adverse reaction [Not Recovered/Not Resolved]
  - Scar [Recovering/Resolving]
  - Abdominal discomfort [Recovered/Resolved]
  - Inflammation [Recovering/Resolving]
  - Post-traumatic stress disorder [Unknown]
  - Sneezing [Unknown]
  - Swelling face [Not Recovered/Not Resolved]
  - Injection site inflammation [Recovering/Resolving]
  - Injection site swelling [Recovering/Resolving]
  - Fungal infection [Recovering/Resolving]
  - Rhinorrhoea [Recovering/Resolving]
  - Malaise [Not Recovered/Not Resolved]
  - Pharyngeal erythema [Recovered/Resolved]
  - Retching [Not Recovered/Not Resolved]
  - Facial pain [Not Recovered/Not Resolved]

NARRATIVE: CASE EVENT DATE: 20140724
